FAERS Safety Report 15487384 (Version 1)
Quarter: 2018Q4

REPORT INFORMATION
  Report Type: Spontaneous
  Country: CA (occurrence: CA)
  Receive Date: 20181011
  Receipt Date: 20181011
  Transmission Date: 20190205
  Serious: Yes (Other)
  Sender: FDA-Public Use
  Company Number: CA-APOTEX-2018AP022174

PATIENT
  Age: 67 Year
  Sex: Female

DRUGS (2)
  1. LOSARTAN. [Suspect]
     Active Substance: LOSARTAN
     Indication: PRODUCT USED FOR UNKNOWN INDICATION
     Dosage: UNK
     Route: 065
  2. LOSARTAN. [Suspect]
     Active Substance: LOSARTAN
     Dosage: DOSE REDUCED HALVED AGAINST MEDICAL ADVICE
     Route: 065

REACTIONS (4)
  - Treatment noncompliance [Unknown]
  - Hypertension [Unknown]
  - Haemoptysis [Unknown]
  - Incorrect dose administered [Unknown]
